FAERS Safety Report 5707691-3 (Version None)
Quarter: 2008Q2

REPORT INFORMATION
  Report Type: 
  Country: None (occurrence: None)
  Receive Date: 20080416
  Receipt Date: 20080410
  Transmission Date: 20081010
  Serious: Yes (Hospitalization)
  Sender: FDA-Public Use
  Company Number: US-PFIZER INC-2008032215

PATIENT
  Sex: Female
  Weight: 88.636 kg

DRUGS (6)
  1. DETROL LA [Suspect]
     Indication: INCONTINENCE
  2. PROZAC [Concomitant]
  3. THYROID TAB [Concomitant]
  4. SYNTHROID [Concomitant]
  5. ALL OTHER THERAPEUTIC PRODUCTS [Concomitant]
  6. PREMARIN [Concomitant]

REACTIONS (1)
  - BLOOD PRESSURE INCREASED [None]
